FAERS Safety Report 4939443-6 (Version None)
Quarter: 2006Q1

REPORT INFORMATION
  Report Type: 
  Country: None (occurrence: None)
  Receive Date: 20060306
  Receipt Date: 20060227
  Transmission Date: 20060701
  Serious: Yes (Death, Hospitalization)
  Sender: FDA-Public Use
  Company Number: 2006-138878-NL

PATIENT
  Age: 78 Year
  Sex: Female

DRUGS (4)
  1. DANAPAROID SODIUM [Suspect]
     Dosage: 750 ANTI_XA/250 ANTI_XA/500 ANTI_XA SUBCUTANEOUS
     Route: 058
     Dates: start: 20050713, end: 20050719
  2. DANAPAROID SODIUM [Suspect]
     Dosage: 750 ANTI_XA/250 ANTI_XA/500 ANTI_XA SUBCUTANEOUS
     Route: 058
     Dates: start: 20050725, end: 20050816
  3. DANAPAROID SODIUM [Suspect]
     Dosage: 750 ANTI_XA/250 ANTI_XA/500 ANTI_XA SUBCUTANEOUS
     Route: 058
     Dates: end: 20050823
  4. HEPARIN [Suspect]
     Dosage: IU
     Dates: end: 20050713

REACTIONS (13)
  - DRUG LEVEL INCREASED [None]
  - GASTROINTESTINAL HAEMORRHAGE [None]
  - HAEMATOMA [None]
  - HAEMORRHAGE [None]
  - HAEMOTHORAX [None]
  - LEUKOCYTOSIS [None]
  - MULTI-ORGAN FAILURE [None]
  - PLATELET COUNT DECREASED [None]
  - POST PROCEDURAL HAEMORRHAGE [None]
  - PUNCTURE SITE HAEMORRHAGE [None]
  - RENAL FAILURE [None]
  - RESPIRATORY FAILURE [None]
  - SHOCK [None]
